FAERS Safety Report 8920786 (Version 1)
Quarter: 2012Q4

REPORT INFORMATION
  Report Type: 
  Country: CH (occurrence: CH)
  Receive Date: 20121122
  Receipt Date: 20121122
  Transmission Date: 20130627
  Serious: Yes (Hospitalization)
  Sender: FDA-Public Use
  Company Number: CH-VERTEX PHARMACEUTICAL INC.-2012-025022

PATIENT
  Age: 72 Year
  Sex: Male

DRUGS (4)
  1. INCIVO [Suspect]
     Indication: CHRONIC HEPATITIS C
     Dosage: Dosage Form: Tablet
     Route: 048
     Dates: start: 20120924, end: 20121004
  2. COPEGUS [Suspect]
     Indication: CHRONIC HEPATITIS C
     Dosage: Dosage Form: Unspecified
     Route: 048
     Dates: start: 20120904
  3. PEGASYS [Suspect]
     Indication: CHRONIC HEPATITIS C
     Dosage: 45 mg, qw
     Route: 048
     Dates: start: 20120904
  4. SANDIMMUN [Suspect]
     Indication: IMMUNOSUPPRESSION
     Dosage: Dosage Form: Unspecified
     Route: 048

REACTIONS (1)
  - Renal failure acute [Recovered/Resolved]
